FAERS Safety Report 10309828 (Version 4)
Quarter: 2014Q3

REPORT INFORMATION
  Report Type: Report from Study
  Country: NL (occurrence: NL)
  Receive Date: 20140717
  Receipt Date: 20140903
  Transmission Date: 20150326
  Serious: Yes (Hospitalization)
  Sender: FDA-Public Use
  Company Number: NL-ROCHE-1423785

PATIENT
  Age: 77 Year
  Sex: Male

DRUGS (5)
  1. CAPECITABINE [Suspect]
     Active Substance: CAPECITABINE
     Indication: GASTRIC CANCER
     Dosage: LAST DOSE PRIOR TO SAE 10/JUN/2014, FREQUENCY 2 WEEKS, 3 WEEKS AND 5 WEEKS, COMMUTATIVE DOSE: 2000MG
     Route: 048
     Dates: start: 20140416, end: 20140610
  2. CISPLATIN. [Suspect]
     Active Substance: CISPLATIN
     Indication: GASTRIC CANCER
     Dosage: LAST DOSE PRIOR TO SAE 07/MAY/2014, COMMUTATIVE DOSE 240 MG
     Route: 042
     Dates: start: 20140416, end: 20140507
  3. EPIRUBICIN [Suspect]
     Active Substance: EPIRUBICIN
     Indication: GASTRIC CANCER
     Dosage: LAST DOSE PRIOR TO SAE 28/MAY/2014, COMMUTATIVE DOSE 300 MG
     Route: 042
     Dates: start: 20140416, end: 20140528
  4. OXALIPLATIN. [Suspect]
     Active Substance: OXALIPLATIN
     Indication: GASTRIC CANCER
     Dosage: LAST DOSE PRIOR TO SAE 28/MAY/2014, 1 ST DAY OF WEEK FOR EVERY 5 WEEKS. CUMULATIVE DOSE-240MG
     Route: 042
     Dates: start: 20140528, end: 20140528
  5. LOPERAMIDE [Concomitant]
     Active Substance: LOPERAMIDE
     Route: 065
     Dates: start: 20140708, end: 20140710

REACTIONS (4)
  - Malaise [Recovered/Resolved]
  - Vomiting [Recovered/Resolved]
  - Dyspnoea [Recovered/Resolved]
  - Hypophagia [Unknown]

NARRATIVE: CASE EVENT DATE: 20140622
